FAERS Safety Report 5954609-4 (Version None)
Quarter: 2008Q4

REPORT INFORMATION
  Report Type: 
  Country: None (occurrence: None)
  Receive Date: 20081117
  Receipt Date: 20081107
  Transmission Date: 20090506
  Serious: Yes (Hospitalization, Other)
  Sender: FDA-Public Use
  Company Number: US-AMGEN-QUU316711

PATIENT
  Sex: Female
  Weight: 69 kg

DRUGS (1)
  1. ARANESP [Suspect]
     Indication: RENAL FAILURE CHRONIC
     Route: 058
     Dates: start: 20081028

REACTIONS (4)
  - PERIORBITAL OEDEMA [None]
  - PYREXIA [None]
  - RASH [None]
  - URTICARIA [None]
